FAERS Safety Report 4931019-X (Version None)
Quarter: 2006Q1

REPORT INFORMATION
  Report Type: 
  Country: None (occurrence: None)
  Receive Date: 20060227
  Receipt Date: 20060216
  Transmission Date: 20060701
  Serious: Yes (Other)
  Sender: FDA-Public Use
  Company Number: 2005-03-1163

PATIENT
  Age: 36 Year
  Sex: Female

DRUGS (2)
  1. CLARITIN REDITABS [Suspect]
     Indication: RHINITIS ALLERGIC
     Dosage: 10 MG ORAL
     Route: 048
     Dates: start: 20050309, end: 20050312
  2. ALLEGRA [Concomitant]

REACTIONS (4)
  - DIARRHOEA [None]
  - LISTLESS [None]
  - NASOPHARYNGITIS [None]
  - VOMITING [None]
